FAERS Safety Report 20844528 (Version 2)
Quarter: 2022Q2

REPORT INFORMATION
  Report Type: Spontaneous
  Country: US (occurrence: US)
  Receive Date: 20220518
  Receipt Date: 20220531
  Transmission Date: 20220720
  Serious: No
  Sender: FDA-Public Use
  Company Number: US-PFIZER INC-202200700636

PATIENT
  Age: 74 Year
  Sex: Female

DRUGS (1)
  1. PAXLOVID [Suspect]
     Active Substance: NIRMATRELVIR\RITONAVIR
     Indication: COVID-19 treatment
     Dosage: UNK
     Dates: start: 2022, end: 2022

REACTIONS (10)
  - Cough [Recovered/Resolved]
  - Rhinorrhoea [Recovering/Resolving]
  - Sneezing [Not Recovered/Not Resolved]
  - Productive cough [Recovering/Resolving]
  - Increased viscosity of bronchial secretion [Unknown]
  - Pyrexia [Unknown]
  - COVID-19 [Unknown]
  - Disease recurrence [Unknown]
  - Fatigue [Unknown]
  - Sinusitis [Recovered/Resolved]

NARRATIVE: CASE EVENT DATE: 20220501
